FAERS Safety Report 5235659-2 (Version None)
Quarter: 2007Q1

REPORT INFORMATION
  Report Type: 
  Country: None (occurrence: None)
  Receive Date: 20070212
  Receipt Date: 20070206
  Transmission Date: 20070707
  Serious: Yes (Life-Threatening, Hospitalization)
  Sender: FDA-Public Use
  Company Number: JP-JPN-A200700194

PATIENT
  Age: 82 Year
  Sex: Female
  Weight: 41 kg

DRUGS (21)
  1. VALTREX [Suspect]
     Indication: HERPES ZOSTER
     Dosage: .5G TWICE PER DAY
     Route: 048
     Dates: start: 20070119, end: 20070121
  2. THYRADIN [Concomitant]
     Dosage: 50MCG PER DAY
     Route: 048
     Dates: start: 20070115, end: 20070123
  3. CALBLOCK [Concomitant]
     Dosage: 16MG PER DAY
     Route: 048
     Dates: start: 20070115, end: 20070123
  4. ONEALFA [Concomitant]
     Dosage: .5MCG PER DAY
     Route: 048
     Dates: start: 20070115, end: 20070123
  5. SERMION [Concomitant]
     Dosage: 5MG PER DAY
     Route: 048
     Dates: start: 20070115, end: 20070123
  6. CLARITIN [Concomitant]
     Route: 048
  7. FRANDOL S [Concomitant]
     Route: 061
  8. ARASENA-A [Concomitant]
     Route: 061
     Dates: start: 20070119, end: 20070119
  9. ARASENA-A [Concomitant]
     Route: 061
     Dates: start: 20070122, end: 20070122
  10. VOLTAREN [Concomitant]
     Route: 054
     Dates: start: 20070119, end: 20070124
  11. ESPO [Concomitant]
     Route: 042
     Dates: start: 20070115, end: 20070115
  12. ESPO [Concomitant]
     Route: 042
     Dates: start: 20070119, end: 20070119
  13. ESPO [Concomitant]
     Route: 042
     Dates: start: 20070122, end: 20070122
  14. ESPO [Concomitant]
     Route: 042
     Dates: start: 20070122, end: 20070122
  15. FESIN [Concomitant]
     Route: 042
     Dates: start: 20070117, end: 20070117
  16. NICARPINE [Concomitant]
     Route: 042
     Dates: start: 20070121, end: 20070122
  17. GLUCOSE [Concomitant]
     Route: 042
     Dates: start: 20070121, end: 20070124
  18. PENTCILLIN [Concomitant]
     Route: 042
     Dates: start: 20070121, end: 20070124
  19. NEOLAMIN [Concomitant]
     Route: 042
     Dates: start: 20070122, end: 20070124
  20. SEISHOKU [Concomitant]
     Route: 042
     Dates: start: 20070122, end: 20070123
  21. XYLOCAINE [Concomitant]
     Route: 042
     Dates: start: 20070122, end: 20070123

REACTIONS (9)
  - ABASIA [None]
  - ANAEMIA [None]
  - DEPRESSED LEVEL OF CONSCIOUSNESS [None]
  - ENCEPHALOPATHY [None]
  - HALLUCINATION [None]
  - MELAENA [None]
  - MUSCLE SPASMS [None]
  - SOMNOLENCE [None]
  - UPPER GASTROINTESTINAL HAEMORRHAGE [None]
